FAERS Safety Report 10659340 (Version 2)
Quarter: 2014Q4

REPORT INFORMATION
  Report Type: Spontaneous
  Country: SG (occurrence: SG)
  Receive Date: 20141217
  Receipt Date: 20141230
  Transmission Date: 20150529
  Serious: Yes (Death, Hospitalization)
  Sender: FDA-Public Use
  Company Number: SG-BAXTER-2014BAX073107

PATIENT
  Age: 73 Year
  Sex: Male

DRUGS (1)
  1. DIANEAL W/ DEXTROSE 1.5% [Suspect]
     Active Substance: CALCIUM CHLORIDE\DEXTROSE\MAGNESIUM CHLORIDE\SODIUM CHLORIDE\SODIUM LACTATE
     Indication: PERITONEAL DIALYSIS
     Route: 033

REACTIONS (3)
  - Hypotension [Unknown]
  - Influenza [Fatal]
  - Diarrhoea [Unknown]

NARRATIVE: CASE EVENT DATE: 20141203
